FAERS Safety Report 7202349-6 (Version None)
Quarter: 2010Q4

REPORT INFORMATION
  Report Type: 
  Country: None (occurrence: None)
  Receive Date: 20101229
  Receipt Date: 20101222
  Transmission Date: 20110411
  Serious: No
  Sender: FDA-Public Use
  Company Number: US-PFIZER INC-2010177917

PATIENT
  Sex: Female
  Weight: 59 kg

DRUGS (6)
  1. NIFEDIPINE [Suspect]
     Indication: HYPERTENSION
     Dosage: 60 MG, DAILY
     Route: 048
     Dates: start: 20090616, end: 20101220
  2. NIFEDIPINE [Suspect]
     Dosage: 60 MG, DAILY
     Route: 048
     Dates: start: 20101221
  3. BACTRIM [Concomitant]
     Indication: URINARY TRACT INFECTION
     Dosage: UNK
  4. CALCIUM [Concomitant]
     Dosage: UNK
  5. ACETAMINOPHEN [Concomitant]
     Indication: ARTHRALGIA
     Dosage: UNK
  6. ZANTAC [Concomitant]
     Dosage: UNK

REACTIONS (16)
  - ASTHENIA [None]
  - DIARRHOEA [None]
  - DIZZINESS [None]
  - DYSGEUSIA [None]
  - EAR DISCOMFORT [None]
  - EYELIDS PRURITUS [None]
  - FATIGUE [None]
  - FEELING ABNORMAL [None]
  - GASTRIC DILATATION [None]
  - JOINT SWELLING [None]
  - MALAISE [None]
  - MUSCLE SPASMS [None]
  - NAUSEA [None]
  - NERVOUSNESS [None]
  - PAIN IN EXTREMITY [None]
  - PARAESTHESIA [None]
